FAERS Safety Report 18472442 (Version 3)
Quarter: 2020Q4

REPORT INFORMATION
  Report Type: Spontaneous
  Country: NZ (occurrence: NZ)
  Receive Date: 20201106
  Receipt Date: 20201112
  Transmission Date: 20210114
  Serious: Yes (Life-Threatening, Hospitalization)
  Sender: FDA-Public Use
  Company Number: NZ-MYLANLABS-2020M1089781

PATIENT
  Sex: Female

DRUGS (14)
  1. CILAZAPRIL [Concomitant]
     Active Substance: CILAZAPRIL ANHYDROUS
     Dosage: 5 MILLIGRAM, AM
  2. PARACETAMOL [Concomitant]
     Active Substance: ACETAMINOPHEN
     Dosage: 1 GRAM, BID
  3. SENNA                              /00142201/ [Concomitant]
     Active Substance: SENNA LEAF
     Dosage: UNK, PM
  4. CHOLECALCIFEROL [Concomitant]
     Active Substance: CHOLECALCIFEROL
     Dosage: 1.25 MILLIGRAM, MONTHLY
  5. CLOZARIL [Suspect]
     Active Substance: CLOZAPINE
     Indication: DEMENTIA
  6. DABIGATRAN [Concomitant]
     Active Substance: DABIGATRAN
     Dosage: 75 MILLIGRAM, BID
  7. ALENDRONIC [Concomitant]
     Active Substance: ALENDRONIC ACID
     Dosage: 70 MILLIGRAM WEEKLY
  8. CLOZARIL [Suspect]
     Active Substance: CLOZAPINE
     Indication: SCHIZOPHRENIA
     Dosage: (AS 50 MG NOON AND 100 MG NOCTE
     Route: 048
     Dates: start: 20200512, end: 20201016
  9. DONEPEZIL. [Concomitant]
     Active Substance: DONEPEZIL
     Dosage: 10 MILLIGRAM, PM
  10. METOPROLOL                         /00376902/ [Concomitant]
     Active Substance: METOPROLOL TARTRATE
     Dosage: 47.5 MILLIGRAM, AM
  11. FELODIPINE. [Concomitant]
     Active Substance: FELODIPINE
     Dosage: 5 MILLIGRAM, AM
  12. DOCUSATE [Concomitant]
     Active Substance: DOCUSATE
     Dosage: UNK UNK, PM
  13. CLOZARIL [Suspect]
     Active Substance: CLOZAPINE
     Indication: DEMENTIA ALZHEIMER^S TYPE
  14. FRUSEMIDE                          /00032601/ [Concomitant]
     Active Substance: FUROSEMIDE
     Dosage: 40 MILLIGRAM, AM

REACTIONS (7)
  - Myocarditis [Recovered/Resolved]
  - Blood creatine phosphokinase increased [Unknown]
  - Pyrexia [Unknown]
  - Fall [Unknown]
  - Troponin increased [Unknown]
  - Brain natriuretic peptide increased [Unknown]
  - C-reactive protein increased [Unknown]
